FAERS Safety Report 4366447-7 (Version None)
Quarter: 2004Q2

REPORT INFORMATION
  Report Type: 
  Country: None (occurrence: None)
  Receive Date: 20040527
  Receipt Date: 20040331
  Transmission Date: 20050107
  Serious: No
  Sender: FDA-Public Use
  Company Number: US-BRISTOL-MYERS SQUIBB COMPANY-12548475

PATIENT
  Age: 51 Year
  Sex: Male
  Weight: 91 kg

DRUGS (3)
  1. ERBITUX [Suspect]
     Indication: COLON CANCER METASTATIC
     Dosage: ADMINISTERED IN TWO DIVIDED DOSES: 300 MG OVER AN HOUR; 500 MG OVER 2 HOURS AND 40 MIN.
     Route: 042
     Dates: start: 20040331, end: 20040331
  2. BENADRYL [Concomitant]
     Indication: PREMEDICATION
     Route: 042
     Dates: start: 20040331, end: 20040331
  3. ZIAC [Concomitant]

REACTIONS (1)
  - RASH [None]
